FAERS Safety Report 6479481-8 (Version None)
Quarter: 2009Q4

REPORT INFORMATION
  Report Type: 
  Country: None (occurrence: None)
  Receive Date: 20091208
  Receipt Date: 20091130
  Transmission Date: 20100525
  Serious: Yes (Hospitalization)
  Sender: FDA-Public Use
  Company Number: US-BIOGENIDEC-2009BI039352

PATIENT
  Sex: Female
  Weight: 40 kg

DRUGS (10)
  1. AVONEX [Suspect]
     Indication: MULTIPLE SCLEROSIS
     Route: 030
  2. AVONEX [Suspect]
     Route: 030
  3. MARINOL [Concomitant]
     Indication: WEIGHT DECREASED
  4. PAXIL [Concomitant]
     Indication: DEPRESSION
  5. PAXIL [Concomitant]
     Indication: ANXIETY
  6. DURAGESIC-100 [Concomitant]
     Indication: PAIN
  7. FIORECET [Concomitant]
     Indication: MIGRAINE
  8. DETROL [Concomitant]
  9. BONIVA [Concomitant]
     Indication: OSTEOPOROSIS
     Dates: start: 20090914
  10. AVELOX [Concomitant]

REACTIONS (5)
  - BLOOD COUNT ABNORMAL [None]
  - BLOOD GLUCOSE DECREASED [None]
  - FALL [None]
  - SPINAL FRACTURE [None]
  - WHITE BLOOD CELL COUNT DECREASED [None]
